FAERS Safety Report 4808155-1 (Version None)
Quarter: 2005Q4

REPORT INFORMATION
  Report Type: 
  Country: None (occurrence: None)
  Receive Date: 20051021
  Receipt Date: 20051017
  Transmission Date: 20060501
  Serious: Yes (Life-Threatening, Hospitalization)
  Sender: FDA-Public Use
  Company Number: LTI2005A00168

PATIENT
  Age: 47 Year
  Sex: Male

DRUGS (3)
  1. ACTOS [Suspect]
     Indication: DIABETES MELLITUS NON-INSULIN-DEPENDENT
     Dosage: 15 MG (15 MG, 1 IN 1 D) ORAL
     Route: 048
     Dates: start: 20050429, end: 20050616
  2. METFORMIN HCL [Suspect]
     Indication: DIABETES MELLITUS NON-INSULIN-DEPENDENT
     Dosage: 2550 MG (850 MG, 3 IN 1 D) ORAL; 3000 MG (1000 MG, 1 IN 1 D) ORAL
     Route: 048
     Dates: start: 20030101, end: 20050429
  3. METFORMIN HCL [Suspect]
     Indication: DIABETES MELLITUS NON-INSULIN-DEPENDENT
     Dosage: 2550 MG (850 MG, 3 IN 1 D) ORAL; 3000 MG (1000 MG, 1 IN 1 D) ORAL
     Route: 048
     Dates: start: 20050430

REACTIONS (3)
  - ANAEMIA HAEMOLYTIC AUTOIMMUNE [None]
  - ASTHENIA [None]
  - JAUNDICE [None]
